FAERS Safety Report 15488525 (Version 1)
Quarter: 2018Q4

REPORT INFORMATION
  Report Type: Report from Study
  Country: CA (occurrence: CA)
  Receive Date: 20181011
  Receipt Date: 20181011
  Transmission Date: 20190205
  Serious: Yes (Hospitalization, Disabling)
  Sender: FDA-Public Use
  Company Number: CA-IPSEN BIOPHARMACEUTICALS, INC.-2018-11619

PATIENT
  Age: 38 Year
  Sex: Female

DRUGS (1)
  1. SOMATULINE AUTOGEL 120MG [Suspect]
     Active Substance: LANREOTIDE ACETATE
     Indication: NEUROENDOCRINE TUMOUR
     Dosage: 120 MG
     Route: 058
     Dates: start: 20180502

REACTIONS (6)
  - Gastrooesophageal reflux disease [Recovering/Resolving]
  - Hepatic necrosis [Recovering/Resolving]
  - Decreased appetite [Not Recovered/Not Resolved]
  - Hepatic pain [Recovering/Resolving]
  - Hepatic artery embolism [Recovering/Resolving]
  - Hepatic infection [Recovering/Resolving]

NARRATIVE: CASE EVENT DATE: 2018
